FAERS Safety Report 5143604-3 (Version None)
Quarter: 2006Q4

REPORT INFORMATION
  Report Type: 
  Country: None (occurrence: None)
  Receive Date: 20061103
  Receipt Date: 20061026
  Transmission Date: 20070319
  Serious: Yes (Death, Hospitalization)
  Sender: FDA-Public Use
  Company Number: JP-JNJFOC-20060901048

PATIENT
  Sex: Female
  Weight: 48 kg

DRUGS (24)
  1. REMICADE [Suspect]
     Route: 042
  2. REMICADE [Suspect]
     Route: 042
  3. REMICADE [Suspect]
     Route: 042
  4. REMICADE [Suspect]
     Route: 042
  5. REMICADE [Suspect]
     Route: 042
  6. REMICADE [Suspect]
     Route: 042
  7. REMICADE [Suspect]
     Route: 042
  8. REMICADE [Suspect]
     Route: 042
  9. REMICADE [Suspect]
     Route: 042
  10. REMICADE [Suspect]
     Route: 042
  11. REMICADE [Suspect]
     Route: 042
  12. REMICADE [Suspect]
     Route: 042
  13. REMICADE [Suspect]
     Route: 042
  14. REMICADE [Suspect]
     Route: 042
  15. REMICADE [Suspect]
     Route: 042
  16. REMICADE [Suspect]
     Route: 042
  17. REMICADE [Suspect]
     Indication: RHEUMATOID ARTHRITIS
     Route: 042
  18. RHEUMATREX [Suspect]
     Route: 048
  19. RHEUMATREX [Suspect]
     Indication: RHEUMATOID ARTHRITIS
     Route: 048
  20. ISCOTIN [Concomitant]
     Indication: ANTIBIOTIC PROPHYLAXIS
     Route: 048
  21. RIDAURA [Concomitant]
     Indication: RHEUMATOID ARTHRITIS
     Route: 048
  22. AZULFIDINE EN-TABS [Concomitant]
     Indication: RHEUMATOID ARTHRITIS
     Route: 048
  23. INFREE [Concomitant]
     Indication: RHEUMATOID ARTHRITIS
     Route: 048
  24. FOLIAMIN [Concomitant]
     Indication: PROPHYLAXIS
     Route: 048

REACTIONS (17)
  - ACUTE RESPIRATORY DISTRESS SYNDROME [None]
  - ALANINE AMINOTRANSFERASE INCREASED [None]
  - ASPARTATE AMINOTRANSFERASE INCREASED [None]
  - CANDIDA SEROLOGY POSITIVE [None]
  - DEHYDRATION [None]
  - DRUG INEFFECTIVE [None]
  - ENTEROCOCCAL INFECTION [None]
  - INTERSTITIAL LUNG DISEASE [None]
  - LUNG INFECTION PSEUDOMONAL [None]
  - PLEURAL EFFUSION [None]
  - PNEUMOCYSTIS JIROVECI PNEUMONIA [None]
  - PNEUMONIA [None]
  - SPUTUM CULTURE POSITIVE [None]
  - SUBCUTANEOUS EMPHYSEMA [None]
  - SYSTEMIC MYCOSIS [None]
  - THERAPY NON-RESPONDER [None]
  - TUBERCULOSIS SKIN TEST POSITIVE [None]
